FAERS Safety Report 12673398 (Version 2)
Quarter: 2016Q3

REPORT INFORMATION
  Report Type: Spontaneous
  Country: US (occurrence: US)
  Receive Date: 20160822
  Receipt Date: 20160831
  Transmission Date: 20161109
  Serious: Yes (Other)
  Sender: FDA-Public Use
  Company Number: PHEH2016US020748

PATIENT
  Age: 77 Year
  Sex: Female

DRUGS (1)
  1. TASIGNA [Suspect]
     Active Substance: NILOTINIB
     Indication: CHRONIC MYELOID LEUKAEMIA
     Dosage: 400 MG, BID (TWICE A DAY)
     Route: 048
     Dates: start: 20160712, end: 20160824

REACTIONS (6)
  - Nausea [Recovered/Resolved]
  - Arthralgia [Unknown]
  - Dyspepsia [Not Recovered/Not Resolved]
  - Rheumatoid arthritis [Not Recovered/Not Resolved]
  - Myalgia [Recovered/Resolved]
  - Myalgia [Recovering/Resolving]

NARRATIVE: CASE EVENT DATE: 20160823
